FAERS Safety Report 5475720-0 (Version None)
Quarter: 2007Q4

REPORT INFORMATION
  Report Type: 
  Country: None (occurrence: None)
  Receive Date: 20071001
  Receipt Date: 20071001
  Transmission Date: 20080405
  Serious: Yes (Other)
  Sender: FDA-Public Use
  Company Number: None

PATIENT
  Sex: Male
  Weight: 86.1834 kg

DRUGS (1)
  1. ENBREL [Suspect]
     Dosage: 50MG  QWEEK  SQ
     Route: 058
     Dates: start: 20070401, end: 20070928

REACTIONS (1)
  - THROAT CANCER [None]
